FAERS Safety Report 7655383-6 (Version None)
Quarter: 2011Q3

REPORT INFORMATION
  Report Type: 
  Country: None (occurrence: None)
  Receive Date: 20110804
  Receipt Date: 20110721
  Transmission Date: 20111222
  Serious: Yes (Hospitalization)
  Sender: FDA-Public Use
  Company Number: FR-SANOFI-AVENTIS-2011SA046480

PATIENT
  Age: 25 Year
  Sex: Female

DRUGS (3)
  1. LOVENOX [Suspect]
     Indication: ACCIDENTAL EXPOSURE
     Route: 031
     Dates: start: 20110309, end: 20110309
  2. MORPHINE [Suspect]
     Indication: ACCIDENTAL EXPOSURE
     Route: 031
     Dates: start: 20110309, end: 20110309
  3. SCOPOLAMINE [Suspect]
     Indication: ACCIDENTAL EXPOSURE
     Route: 031
     Dates: start: 20110309, end: 20110309

REACTIONS (3)
  - MYDRIASIS [None]
  - ACCIDENTAL EXPOSURE [None]
  - OCULAR DISCOMFORT [None]
